FAERS Safety Report 22400233 (Version 1)
Quarter: 2023Q2

REPORT INFORMATION
  Report Type: Spontaneous
  Country: US (occurrence: None)
  Receive Date: 20230601
  Receipt Date: 20230601
  Transmission Date: 20230721
  Serious: Yes (Hospitalization)
  Sender: FDA-Public Use
  Company Number: None

PATIENT
  Age: 76 Year
  Sex: Female
  Weight: 59.4 kg

DRUGS (13)
  1. PROLIA [Suspect]
     Active Substance: DENOSUMAB
     Indication: Osteoporosis
     Dosage: OTHER QUANTITY : 1 INJECTION(S);?OTHER FREQUENCY : EVERY SIX MONTH;?
     Route: 058
     Dates: start: 20170515, end: 20230309
  2. EXOGEN ULTRASOUND BONE HEALING SYSTEM [Concomitant]
  3. LISTENTOLPRIL [Concomitant]
  4. AMLODIPINE BESYLATE [Concomitant]
     Active Substance: AMLODIPINE BESYLATE
  5. POTASSIUM [Concomitant]
     Active Substance: POTASSIUM
  6. PREMARIN [Concomitant]
     Active Substance: ESTROGENS, CONJUGATED
  7. DICLOFENAC SODIUM [Concomitant]
     Active Substance: DICLOFENAC SODIUM
  8. CALCIUM\VITAMIN D [Concomitant]
     Active Substance: CALCIUM\VITAMIN D
  9. VITAMIN B12 [Concomitant]
     Active Substance: CYANOCOBALAMIN
  10. VITAMIN D3 [Concomitant]
     Active Substance: CHOLECALCIFEROL
  11. JOINT SUPPORT [Concomitant]
  12. GOLO [Concomitant]
  13. CUR-Q10 ULTRA [Concomitant]

REACTIONS (4)
  - Balance disorder [None]
  - Fall [None]
  - Femur fracture [None]
  - Osteogenesis imperfecta [None]

NARRATIVE: CASE EVENT DATE: 20220529
